FAERS Safety Report 6279628-2 (Version None)
Quarter: 2009Q3

REPORT INFORMATION
  Report Type: 
  Country: None (occurrence: None)
  Receive Date: 20090723
  Receipt Date: 20090717
  Transmission Date: 20100115
  Serious: Yes (Other)
  Sender: FDA-Public Use
  Company Number: B0584674A

PATIENT
  Sex: Male

DRUGS (1)
  1. VENTOLIN [Suspect]
     Indication: PAINFUL RESPIRATION
     Dosage: 2PUFF SINGLE DOSE
     Route: 055
     Dates: start: 20090712, end: 20090712

REACTIONS (5)
  - ANAPHYLACTIC SHOCK [None]
  - ANGIOEDEMA [None]
  - BLOOD PRESSURE DECREASED [None]
  - FEELING COLD [None]
  - RASH [None]
